FAERS Safety Report 17910738 (Version 1)
Quarter: 2020Q2

REPORT INFORMATION
  Report Type: Spontaneous
  Country: DE (occurrence: DE)
  Receive Date: 20200618
  Receipt Date: 20200618
  Transmission Date: 20200714
  Serious: Yes (Hospitalization)
  Sender: FDA-Public Use
  Company Number: DE-GLAXOSMITHKLINE-DE2020101853

PATIENT
  Age: 68 Year
  Sex: Female
  Weight: 75 kg

DRUGS (11)
  1. LANSOPRAZOL [Concomitant]
     Active Substance: LANSOPRAZOLE
     Indication: PRODUCT USED FOR UNKNOWN INDICATION
     Dosage: 30 MG, QD, 1-0-0-0
     Route: 065
  2. NOSCAPIN [Concomitant]
     Indication: PRODUCT USED FOR UNKNOWN INDICATION
     Dosage: 25 MG, PRN, NEED, TABLETS
     Route: 065
  3. METAMIZOLE SODIUM [Concomitant]
     Active Substance: METAMIZOLE SODIUM
     Indication: PRODUCT USED FOR UNKNOWN INDICATION
     Dosage: 500 MG, PRN, NEED, TABLETS
     Route: 065
  4. OPIPRAMOL [Concomitant]
     Active Substance: OPIPRAMOL
     Indication: PRODUCT USED FOR UNKNOWN INDICATION
     Dosage: 50 MG, QD, 50 MG, 0-0-0-1, TABLET
     Route: 065
  5. ROSUVASTATIN. [Concomitant]
     Active Substance: ROSUVASTATIN
     Indication: PRODUCT USED FOR UNKNOWN INDICATION
     Dosage: 20 MG, QD, 1-0-0-0
     Route: 065
  6. GLYCOPYRRONIUMBROMID [Concomitant]
     Indication: PRODUCT USED FOR UNKNOWN INDICATION
     Dosage: 44 UG, QD, 0-0-1-0
     Route: 055
  7. ACETYLSALICYLIC ACID [Concomitant]
     Active Substance: ASPIRIN
     Indication: PRODUCT USED FOR UNKNOWN INDICATION
     Dosage: 100 MG, QD, 0-1-0-0
     Route: 065
  8. FENOTEROL + IPRATROPII BROMIDUM [Concomitant]
     Indication: PRODUCT USED FOR UNKNOWN INDICATION
     Dosage: UNK, PRN, 39.47|16.22 ?G, AS NEEDED
     Route: 055
  9. CANDESARTAN. [Concomitant]
     Active Substance: CANDESARTAN
     Indication: PRODUCT USED FOR UNKNOWN INDICATION
     Dosage: 8 MG, QD, 1-0-0-0
     Route: 065
  10. FLUTICASONE FUROATE + VILANTEROL TRIFENATATE [Suspect]
     Active Substance: FLUTICASONE FUROATE\VILANTEROL TRIFENATATE
     Indication: PRODUCT USED FOR UNKNOWN INDICATION
     Dosage: UNK UNK, QD, 184|22 ?G, 1-0-0-0
     Route: 055
  11. NAPROXEN. [Concomitant]
     Active Substance: NAPROXEN
     Indication: PRODUCT USED FOR UNKNOWN INDICATION
     Dosage: 500 MG, PRN, 500 MG, NEED, TABLETS
     Route: 065

REACTIONS (7)
  - Back pain [Unknown]
  - Prolonged expiration [Unknown]
  - General physical health deterioration [Unknown]
  - Productive cough [Unknown]
  - Paraesthesia [Unknown]
  - Musculoskeletal pain [Unknown]
  - Cough [Unknown]
